FAERS Safety Report 22534084 (Version 2)
Quarter: 2023Q4

REPORT INFORMATION
  Report Type: Report from Study
  Country: CL (occurrence: CL)
  Receive Date: 20230608
  Receipt Date: 20231123
  Transmission Date: 20240109
  Serious: Yes (Hospitalization)
  Sender: FDA-Public Use
  Company Number: CL-JNJFOC-20230610642

PATIENT
  Age: 59 Year
  Sex: Female

DRUGS (5)
  1. SIMPONI [Suspect]
     Active Substance: GOLIMUMAB
     Indication: Rheumatoid arthritis
     Route: 058
     Dates: start: 20221102
  2. PREGABALIN [Concomitant]
     Active Substance: PREGABALIN
  3. ACYCLOVIR [Concomitant]
     Active Substance: ACYCLOVIR
  4. CRONUS [PARACETAMOL;TRAMADOL HYDROCHLORIDE] [Concomitant]
  5. PREDNISONE [Concomitant]
     Active Substance: PREDNISONE

REACTIONS (3)
  - Rash pustular [Unknown]
  - Pain [Unknown]
  - Back pain [Not Recovered/Not Resolved]

NARRATIVE: CASE EVENT DATE: 20230514
